FAERS Safety Report 6599235-1 (Version None)
Quarter: 2010Q1

REPORT INFORMATION
  Report Type: 
  Country: None (occurrence: None)
  Receive Date: 20100224
  Receipt Date: 20100215
  Transmission Date: 20100710
  Serious: Yes (Other)
  Sender: FDA-Public Use
  Company Number: PHHY2010AU08796

PATIENT
  Age: 78 Year
  Sex: Female

DRUGS (1)
  1. ACLASTA [Suspect]
     Dosage: UNK
     Dates: start: 20100211

REACTIONS (5)
  - ASTHENIA [None]
  - HYPOTENSION [None]
  - INFLUENZA LIKE ILLNESS [None]
  - PYREXIA [None]
  - SYNCOPE [None]
